FAERS Safety Report 12229675 (Version 1)
Quarter: 2016Q1

REPORT INFORMATION
  Report Type: Spontaneous
  Country: US (occurrence: None)
  Receive Date: 20160331
  Receipt Date: 20160331
  Transmission Date: 20160526
  Serious: Yes (Hospitalization)
  Sender: FDA-Public Use
  Company Number: None

PATIENT
  Age: 20 Year
  Sex: Female

DRUGS (7)
  1. TRI-SPRINTEC (ETHINYL ESTRADIOL; NORGESTIMATE) [Concomitant]
  2. HYOSCYAMINE SULFATE ODT (HYOSCYAM, 0.125 MG VIRTUS PHARMACEUTICALS [Suspect]
     Active Substance: HYOSCYAMINE SULFATE
     Indication: ABDOMINAL PAIN
     Dosage: 1 TABLET(S) TWICE A DAY TAKEN BY MOUTH
     Route: 048
  3. HYOSCYAMINE SULFATE ODT (HYOSCYAM, 0.125 MG VIRTUS PHARMACEUTICALS [Suspect]
     Active Substance: HYOSCYAMINE SULFATE
     Indication: GASTROINTESTINAL PAIN
     Dosage: 1 TABLET(S) TWICE A DAY TAKEN BY MOUTH
     Route: 048
  4. SUCRALFATE (SUCRALFATE) UNKNOWN [Concomitant]
     Active Substance: SUCRALFATE
  5. OMEPRAZOLE (OMEPRAZOLE) [Concomitant]
     Active Substance: OMEPRAZOLE
  6. HYOSCYAMINE SULFATE ODT (HYOSCYAM, 0.125 MG VIRTUS PHARMACEUTICALS [Suspect]
     Active Substance: HYOSCYAMINE SULFATE
     Indication: ABDOMINAL PAIN UPPER
     Dosage: 1 TABLET(S) TWICE A DAY TAKEN BY MOUTH
     Route: 048
  7. BIOTIN (DIETARY SUPPLEMENT) [Concomitant]

REACTIONS (5)
  - Accidental overdose [None]
  - Product taste abnormal [None]
  - Metabolic encephalopathy [None]
  - Loss of consciousness [None]
  - Anticholinergic syndrome [None]

NARRATIVE: CASE EVENT DATE: 20160226
